FAERS Safety Report 4531879-0 (Version None)
Quarter: 2004Q4

REPORT INFORMATION
  Report Type: 
  Country: None (occurrence: None)
  Receive Date: 20041216
  Receipt Date: 20041130
  Transmission Date: 20050328
  Serious: Yes (Other)
  Sender: FDA-Public Use
  Company Number: 2004106801

PATIENT
  Sex: Female
  Weight: 117.9352 kg

DRUGS (9)
  1. BEXTRA [Suspect]
     Indication: RHEUMATOID ARTHRITIS
     Dosage: 20 MG (20 MG, 1 IN 1 D), ORAL
     Route: 048
     Dates: start: 20041001
  2. CELEBREX [Suspect]
     Indication: FIBROMYALGIA
     Dosage: 400 MG (200 MG, 2 IN 1 D), ORAL
     Route: 048
  3. TIZANIDINE HCL [Concomitant]
  4. ULTRACET [Concomitant]
  5. METOPROLOL SUCCINATE [Concomitant]
  6. NIFEDIPINE [Concomitant]
  7. TERAZOSIN HYDROCHLORIDE [Concomitant]
  8. FOSINOPRIL SODIUM [Concomitant]
  9. HYDROCHLOROTHIAZIDE [Concomitant]

REACTIONS (9)
  - BLOOD POTASSIUM DECREASED [None]
  - CARDIAC ABLATION [None]
  - DRUG EFFECT DECREASED [None]
  - DRUG INEFFECTIVE [None]
  - DYSPEPSIA [None]
  - GLOMERULOSCLEROSIS [None]
  - PAIN EXACERBATED [None]
  - PALPITATIONS [None]
  - RHEUMATOID ARTHRITIS [None]
